FAERS Safety Report 6040170-5 (Version None)
Quarter: 2009Q1

REPORT INFORMATION
  Report Type: 
  Country: None (occurrence: None)
  Receive Date: 20090116
  Receipt Date: 20080102
  Transmission Date: 20090719
  Serious: Yes (Other)
  Sender: FDA-Public Use
  Company Number: US-BRISTOL-MYERS SQUIBB COMPANY-14029995

PATIENT

DRUGS (1)
  1. ABILIFY [Suspect]

REACTIONS (2)
  - HYPERTENSION [None]
  - NEUROLEPTIC MALIGNANT SYNDROME [None]
